FAERS Safety Report 9038912 (Version 1)
Quarter: 2013Q1

REPORT INFORMATION
  Report Type: Spontaneous
  Country: US (occurrence: None)
  Receive Date: 20130123
  Receipt Date: 20130123
  Transmission Date: 20140127
  Serious: Yes (Life-Threatening, Hospitalization, Disabling, Other)
  Sender: FDA-Public Use
  Company Number: None

PATIENT
  Sex: Female
  Weight: 77.11 kg

DRUGS (2)
  1. ZYPREXA [Suspect]
     Indication: DEPRESSION
     Route: 048
     Dates: start: 1999, end: 2004
  2. ZYPREXA [Suspect]
     Indication: BIPOLAR DISORDER
     Route: 048
     Dates: start: 2005, end: 2011

REACTIONS (7)
  - Dyspnoea [None]
  - Headache [None]
  - Chills [None]
  - Hyperhidrosis [None]
  - Autonomic neuropathy [None]
  - Hypoaesthesia [None]
  - Nervous system disorder [None]
